FAERS Safety Report 6372085-7 (Version None)
Quarter: 2009Q3

REPORT INFORMATION
  Report Type: 
  Country: None (occurrence: None)
  Receive Date: 20090917
  Receipt Date: 20090901
  Transmission Date: 20100115
  Serious: Yes (Hospitalization)
  Sender: FDA-Public Use
  Company Number: 002747

PATIENT
  Age: 61 Year
  Sex: Female
  Weight: 76 kg

DRUGS (13)
  1. PEGAPTANIB SODIUM; PLACEBO (CODE NOT BROKEN)UNKNOWN [Suspect]
     Indication: DIABETIC RETINAL OEDEMA
     Dosage: 0.3MG, EVERY 6 WKS, INTRAOCULAR
     Route: 031
     Dates: start: 20080327
  2. ACETYLSALICYLIC ACID SRT [Suspect]
     Indication: ANTICOAGULANT THERAPY
     Dates: end: 20090814
  3. INSULIN [Suspect]
  4. GLIMADAY (GLIMEPIRIDE, METFORMIN) [Concomitant]
  5. AMLODIPINE [Concomitant]
  6. MULTIVITAMINS (ASCORBIC ACID, ERGOCALCIFEROL, FOLIC ACID, NICOTINAMIDE [Concomitant]
  7. PANTOPRAZOLE (PANTOPRAZOLE) TABLET [Concomitant]
  8. ATORVASTATIN CALCIUM [Concomitant]
  9. TROPICAMIDE (TROPICAMIDE) EYE DROPS [Concomitant]
  10. PROPARACAINE (PROXYMETACAINE) EYE DROPS [Concomitant]
  11. XYLOCAINE (LIDOCAINE HYDROCHLORIDE) EYE DROPS [Concomitant]
  12. OFLOXACIN (OFLOXACIN) EYE DROPS [Concomitant]
  13. POVIDONE-IODINE (POVIDONE-IODINE) EYE DROPS [Concomitant]

REACTIONS (6)
  - HAEMATOCRIT DECREASED [None]
  - HAEMOGLOBIN DECREASED [None]
  - MEAN CELL HAEMOGLOBIN CONCENTRATION DECREASED [None]
  - MEAN CELL HAEMOGLOBIN DECREASED [None]
  - MEAN CELL VOLUME DECREASED [None]
  - VITREOUS HAEMORRHAGE [None]
